FAERS Safety Report 4810989-4 (Version None)
Quarter: 2005Q4

REPORT INFORMATION
  Report Type: 
  Country: None (occurrence: None)
  Receive Date: 20051025
  Receipt Date: 20051019
  Transmission Date: 20060501
  Serious: Yes (Hospitalization)
  Sender: FDA-Public Use
  Company Number: STA-AE-05-032

PATIENT
  Age: 61 Year
  Sex: Male

DRUGS (4)
  1. DILTIAZEM HCL [Suspect]
     Indication: HYPERTENSION
     Dosage: 300 MG/D
  2. NADOLOL [Concomitant]
  3. IRBESARTAN [Concomitant]
  4. HYDROCHLOROTHIAZIDE [Concomitant]

REACTIONS (4)
  - DISORIENTATION [None]
  - LETHARGY [None]
  - SINUS ARREST [None]
  - SINUS BRADYCARDIA [None]
